APPROVED DRUG PRODUCT: REDITREX
Active Ingredient: METHOTREXATE
Strength: 22.5MG/ML (22.5MG/ML)
Dosage Form/Route: SOLUTION;SUBCUTANEOUS
Application: N210737 | Product #007
Applicant: NORDIC GROUP BV
Approved: Nov 27, 2019 | RLD: Yes | RS: No | Type: DISCN